FAERS Safety Report 18647520 (Version 1)
Quarter: 2020Q4

REPORT INFORMATION
  Report Type: Spontaneous
  Country: US (occurrence: US)
  Receive Date: 20201218
  Receipt Date: 20201218
  Transmission Date: 20210114
  Serious: Yes (Hospitalization, Other)
  Sender: FDA-Public Use
  Company Number: None

PATIENT
  Age: 21 Year
  Sex: Male
  Weight: 61.24 kg

DRUGS (4)
  1. 2600MG D8 SPECIAL EDITION EXTREME BROWNIE [.DELTA.8-TETRAHYDROCANNABINOL] [Suspect]
     Active Substance: .DELTA.8-TETRAHYDROCANNABINOL\HERBALS
     Indication: DEPRESSION
  2. 2600MG D8 SPECIAL EDITION EXTREME BROWNIE [.DELTA.8-TETRAHYDROCANNABINOL] [Suspect]
     Active Substance: .DELTA.8-TETRAHYDROCANNABINOL\HERBALS
     Indication: INSOMNIA
  3. 2600MG D8 SPECIAL EDITION EXTREME BROWNIE [.DELTA.8-TETRAHYDROCANNABINOL] [Suspect]
     Active Substance: .DELTA.8-TETRAHYDROCANNABINOL\HERBALS
     Indication: ATTENTION DEFICIT HYPERACTIVITY DISORDER
  4. 2600MG D8 SPECIAL EDITION EXTREME BROWNIE [.DELTA.8-TETRAHYDROCANNABINOL] [Suspect]
     Active Substance: .DELTA.8-TETRAHYDROCANNABINOL\HERBALS
     Indication: ANXIETY
     Route: 048
     Dates: start: 20201215, end: 20201215

REACTIONS (7)
  - Muscular weakness [None]
  - Motor dysfunction [None]
  - Visual impairment [None]
  - Hallucination, visual [None]
  - Hallucination, auditory [None]
  - Depersonalisation/derealisation disorder [None]
  - Lethargy [None]

NARRATIVE: CASE EVENT DATE: 20201215
